FAERS Safety Report 6696161-4 (Version None)
Quarter: 2010Q2

REPORT INFORMATION
  Report Type: 
  Country: None (occurrence: None)
  Receive Date: 20100422
  Receipt Date: 20100406
  Transmission Date: 20101027
  Serious: Yes (Death, Hospitalization, Other)
  Sender: FDA-Public Use
  Company Number: 2010S1000031

PATIENT
  Age: 16 Year
  Sex: Female
  Weight: 50 kg

DRUGS (2)
  1. INOMAX [Suspect]
     Indication: MEAN ARTERIAL PRESSURE DECREASED
     Dosage: 19 PPM;INH
     Route: 055
     Dates: start: 20091130, end: 20091130
  2. INOMAX [Suspect]
     Indication: PULMONARY HYPERTENSION
     Dosage: 19 PPM;INH
     Route: 055
     Dates: start: 20091130, end: 20091130

REACTIONS (8)
  - DILATATION ATRIAL [None]
  - DRUG INEFFECTIVE [None]
  - PULMONARY ARTERY DILATATION [None]
  - PULMONARY EMBOLISM [None]
  - PULMONARY HYPERTENSION [None]
  - RIGHT VENTRICULAR DYSFUNCTION [None]
  - RIGHT VENTRICULAR HYPERTROPHY [None]
  - TRICUSPID VALVE INCOMPETENCE [None]
